FAERS Safety Report 10776713 (Version 1)
Quarter: 2015Q1

REPORT INFORMATION
  Report Type: Spontaneous
  Country: US (occurrence: None)
  Receive Date: 20150205
  Receipt Date: 20150205
  Transmission Date: 20150721
  Serious: No
  Sender: FDA-Public Use
  Company Number: None

PATIENT
  Age: 26 Year
  Sex: Female
  Weight: 58.97 kg

DRUGS (3)
  1. QUARTETTE [Concomitant]
     Active Substance: ETHINYL ESTRADIOL\LEVONORGESTREL
  2. ASPIRIN. [Concomitant]
     Active Substance: ASPIRIN
  3. AMPHETAMINE SALTS [Suspect]
     Active Substance: AMPHETAMINE ASPARTATE\AMPHETAMINE SULFATE\DEXTROAMPHETAMINE SACCHARATE\DEXTROAMPHETAMINE SULFATE
     Dosage: 1/2 TAB, THREE TIMES DAILY, TAKEN BY MOUTH
     Route: 048
     Dates: start: 20141230, end: 20150204

REACTIONS (6)
  - Fatigue [None]
  - Product quality issue [None]
  - Anxiety [None]
  - Drug ineffective [None]
  - Depression [None]
  - Product substitution issue [None]

NARRATIVE: CASE EVENT DATE: 20150204
